FAERS Safety Report 5009002-8 (Version None)
Quarter: 2006Q2

REPORT INFORMATION
  Report Type: 
  Country: None (occurrence: None)
  Receive Date: 20060519
  Receipt Date: 20060510
  Transmission Date: 20061013
  Serious: Yes (Hospitalization)
  Sender: FDA-Public Use
  Company Number: TCI2006A01414

PATIENT
  Age: 5 Decade
  Sex: Male

DRUGS (2)
  1. ACTOS [Suspect]
  2. INSULIN [Concomitant]

REACTIONS (2)
  - BLOOD CHOLESTEROL INCREASED [None]
  - NEPHROTIC SYNDROME [None]
